FAERS Safety Report 13519816 (Version 1)
Quarter: 2017Q2

REPORT INFORMATION
  Report Type: Report from Study
  Country: None (occurrence: DE)
  Receive Date: 20170506
  Receipt Date: 20170506
  Transmission Date: 20170830
  Serious: Yes (Death, Hospitalization)
  Sender: FDA-Public Use
  Company Number: DE-ABBVIE-17K-062-1965150-00

PATIENT
  Age: 77 Year
  Sex: Male

DRUGS (10)
  1. RIVOTRIL [Concomitant]
     Active Substance: CLONAZEPAM
     Indication: PRODUCT USED FOR UNKNOWN INDICATION
  2. ASPIRIN. [Concomitant]
     Active Substance: ASPIRIN
     Indication: PRODUCT USED FOR UNKNOWN INDICATION
  3. DUODOPA [Suspect]
     Active Substance: CARBIDOPA\LEVODOPA
     Indication: PARKINSON^S DISEASE
     Dosage: MD 4.5 ML; CRD 3.5 ML/ H; CRN 3.5 ML/ H
     Route: 050
     Dates: start: 20130920
  4. VITAMIN B12 [Concomitant]
     Active Substance: CYANOCOBALAMIN
     Indication: PRODUCT USED FOR UNKNOWN INDICATION
  5. ALLOPURINOL 300 [Concomitant]
     Active Substance: ALLOPURINOL
     Indication: PRODUCT USED FOR UNKNOWN INDICATION
  6. PK MERZ [Concomitant]
     Active Substance: AMANTADINE SULFATE
     Indication: PRODUCT USED FOR UNKNOWN INDICATION
  7. PANTOZOL [Concomitant]
     Active Substance: PANTOPRAZOLE SODIUM
     Indication: PRODUCT USED FOR UNKNOWN INDICATION
  8. XADAGO 100 [Concomitant]
     Indication: PRODUCT USED FOR UNKNOWN INDICATION
  9. TORASEMID 10 [Concomitant]
     Indication: PRODUCT USED FOR UNKNOWN INDICATION
  10. BRINTELLIX 10 [Concomitant]
     Indication: PRODUCT USED FOR UNKNOWN INDICATION

REACTIONS (2)
  - Death [Fatal]
  - Hospitalisation [Unknown]

NARRATIVE: CASE EVENT DATE: 20170421
